FAERS Safety Report 24651235 (Version 4)
Quarter: 2024Q4

REPORT INFORMATION
  Report Type: Spontaneous
  Country: US (occurrence: US)
  Receive Date: 20241122
  Receipt Date: 20241127
  Transmission Date: 20250115
  Serious: Yes (Hospitalization)
  Sender: ROCHE
  Company Number: US-ROCHE-10000136473

PATIENT
  Age: 78 Year
  Sex: Male

DRUGS (9)
  1. OBINUTUZUMAB [Suspect]
     Active Substance: OBINUTUZUMAB
     Indication: Diffuse large B-cell lymphoma
     Route: 065
  2. GLOFITAMAB [Suspect]
     Active Substance: GLOFITAMAB
     Indication: Diffuse large B-cell lymphoma
     Route: 042
  3. RITUXIMAB [Concomitant]
     Active Substance: RITUXIMAB
     Indication: Diffuse large B-cell lymphoma
  4. CYCLOPHOSPHAMIDE [Concomitant]
     Active Substance: CYCLOPHOSPHAMIDE
  5. DOXORUBICIN [Concomitant]
     Active Substance: DOXORUBICIN
  6. PREDNISONE [Concomitant]
     Active Substance: PREDNISONE
  7. RASBURICASE [Concomitant]
     Active Substance: RASBURICASE
  8. GEMCITABINE [Concomitant]
     Active Substance: GEMCITABINE
  9. OXALIPLATIN [Concomitant]
     Active Substance: OXALIPLATIN

REACTIONS (6)
  - Nausea [Unknown]
  - Lethargy [Unknown]
  - Hypotension [Unknown]
  - Tumour lysis syndrome [Recovering/Resolving]
  - Cytokine release syndrome [Recovered/Resolved]
  - Acute kidney injury [Unknown]
